FAERS Safety Report 18652125 (Version 1)
Quarter: 2020Q4

REPORT INFORMATION
  Report Type: Spontaneous
  Country: US (occurrence: US)
  Receive Date: 20201223
  Receipt Date: 20201223
  Transmission Date: 20210114
  Serious: Yes (Other)
  Sender: FDA-Public Use
  Company Number: US-STRIDES ARCOLAB LIMITED-2020SP013201

PATIENT
  Age: 60 Year
  Sex: Female

DRUGS (6)
  1. DILTIAZEM. [Suspect]
     Active Substance: DILTIAZEM
     Indication: THYROTOXIC CRISIS
     Dosage: UNK
     Route: 041
  2. ADENOSINE. [Suspect]
     Active Substance: ADENOSINE
     Indication: THYROTOXIC CRISIS
     Dosage: 12 MILLIGRAM FREQ: UNK
     Route: 042
  3. ADENOSINE. [Suspect]
     Active Substance: ADENOSINE
     Dosage: 6 MILLIGRAM FREQ: UNK
     Route: 042
  4. PROPYLTHIOURACIL. [Suspect]
     Active Substance: PROPYLTHIOURACIL
     Indication: THYROTOXIC CRISIS
     Dosage: 150 MILLIGRAM, EVERY 8 HRS
     Route: 048
  5. PREDNISOLONE. [Suspect]
     Active Substance: PREDNISOLONE
     Indication: THYROTOXIC CRISIS
     Dosage: 20 MILLIGRAM, EVERY 12 HRS
     Route: 048
  6. PROPRANOLOL [Suspect]
     Active Substance: PROPRANOLOL HYDROCHLORIDE
     Indication: THYROTOXIC CRISIS
     Dosage: 60 MILLIGRAM, EVERY 6 HRS
     Route: 048

REACTIONS (1)
  - Drug ineffective [Unknown]
